FAERS Safety Report 6604034-8 (Version None)
Quarter: 2010Q1

REPORT INFORMATION
  Report Type: 
  Country: None (occurrence: None)
  Receive Date: 20100226
  Receipt Date: 20090421
  Transmission Date: 20100710
  Serious: No
  Sender: FDA-Public Use
  Company Number: A0779924A

PATIENT
  Age: 62 Year
  Sex: Female

DRUGS (4)
  1. LAMICTAL CD [Suspect]
     Indication: COMPLEX PARTIAL SEIZURES
     Dosage: 25MG PER DAY
     Route: 048
     Dates: start: 20080901
  2. DILANTIN [Concomitant]
  3. NEURONTIN [Concomitant]
  4. ZYPREXA [Concomitant]

REACTIONS (1)
  - SLEEP DISORDER [None]
